FAERS Safety Report 5838704-6 (Version None)
Quarter: 2008Q3

REPORT INFORMATION
  Report Type: 
  Country: None (occurrence: None)
  Receive Date: 20080808
  Receipt Date: 20080801
  Transmission Date: 20090109
  Serious: Yes (Other)
  Sender: FDA-Public Use
  Company Number: B0528134A

PATIENT
  Age: 32 Year
  Sex: Female

DRUGS (6)
  1. FLOLAN [Suspect]
     Route: 042
     Dates: start: 20080627
  2. KALETRA [Suspect]
  3. EPIVIR [Suspect]
  4. COMBIVIR [Suspect]
  5. REVATIO [Concomitant]
  6. ILOPROST [Concomitant]

REACTIONS (3)
  - CARDIAC FAILURE [None]
  - DRUG EXPOSURE DURING PREGNANCY [None]
  - URTICARIA [None]
